FAERS Safety Report 5027563-X (Version None)
Quarter: 2006Q2

REPORT INFORMATION
  Report Type: 
  Country: None (occurrence: None)
  Receive Date: 20060616
  Receipt Date: 20051130
  Transmission Date: 20061013
  Serious: Yes (Hospitalization)
  Sender: FDA-Public Use
  Company Number: US-AMGEN-US159537

PATIENT
  Sex: Female
  Weight: 54.5 kg

DRUGS (3)
  1. ENBREL [Suspect]
     Indication: RHEUMATOID ARTHRITIS
     Route: 058
     Dates: start: 20010201, end: 20050615
  2. ARAVA [Suspect]
     Dates: start: 20011218, end: 20041001
  3. PREDNISONE [Concomitant]
     Dates: end: 20020601

REACTIONS (5)
  - BRONCHITIS [None]
  - COLITIS COLLAGENOUS [None]
  - COLITIS PSEUDOMEMBRANOUS [None]
  - CONDITION AGGRAVATED [None]
  - RHEUMATOID ARTHRITIS [None]
